FAERS Safety Report 22606927 (Version 1)
Quarter: 2023Q2

REPORT INFORMATION
  Report Type: Report from Study
  Country: US (occurrence: US)
  Receive Date: 20230615
  Receipt Date: 20230615
  Transmission Date: 20230721
  Serious: Yes (Hospitalization, Other)
  Sender: FDA-Public Use
  Company Number: US-BAYER-2023A080616

PATIENT
  Sex: Female
  Weight: 78.7 kg

DRUGS (3)
  1. COPANLISIB [Suspect]
     Active Substance: COPANLISIB
     Indication: Invasive breast carcinoma
     Dosage: 45 MG - D1,8,15
     Dates: start: 20230516, end: 20230523
  2. ABEMACICLIB [Suspect]
     Active Substance: ABEMACICLIB
     Indication: Invasive breast carcinoma
     Dosage: 100 MG, BID - 5D ON/2D OFF PER WEEK
     Dates: start: 20230517, end: 20230527
  3. FULVESTRANT [Suspect]
     Active Substance: FULVESTRANT
     Indication: Invasive breast carcinoma
     Dosage: 500 MG
     Dates: start: 20230517, end: 20230606

REACTIONS (2)
  - Pyrexia [None]
  - Rash maculo-papular [None]

NARRATIVE: CASE EVENT DATE: 20230529
